FAERS Safety Report 5356386-7 (Version None)
Quarter: 2007Q2

REPORT INFORMATION
  Report Type: 
  Country: None (occurrence: None)
  Receive Date: 20070530
  Receipt Date: 20061106
  Transmission Date: 20071010
  Serious: Yes (Hospitalization)
  Sender: FDA-Public Use
  Company Number: US200609004870

PATIENT
  Age: 49 Year
  Sex: Male
  Weight: 90.7 kg

DRUGS (12)
  1. ZYPREXA [Suspect]
     Indication: BIPOLAR DISORDER
     Dosage: 20 MG
     Dates: start: 19970101, end: 20060101
  2. SEROQUEL /UNK/ (QUETIAPINE FUMARATE) [Concomitant]
  3. RISPERDAL /SWE/ (RISPERIDONE) [Concomitant]
  4. THORAZINE [Concomitant]
  5. DEPAKOTE (VAPROATE SEMISODIUM) [Concomitant]
  6. LITHIUM CARBONATE [Concomitant]
  7. WELLBUTRIN [Concomitant]
  8. CELEXA [Concomitant]
  9. SINEQUAN [Concomitant]
  10. PROZAC [Concomitant]
  11. EFFEXOR [Concomitant]
  12. LOPRESSOR [Concomitant]

REACTIONS (3)
  - DIABETES MELLITUS [None]
  - DIABETIC COMA [None]
  - VISION BLURRED [None]
